FAERS Safety Report 10286487 (Version 3)
Quarter: 2014Q4

REPORT INFORMATION
  Report Type: Other
  Country: DE (occurrence: DE)
  Receive Date: 20140709
  Receipt Date: 20141125
  Transmission Date: 20150528
  Serious: Yes (Death, Life-Threatening, Hospitalization)
  Sender: FDA-Public Use
  Company Number: DE-GLENMARK GENERICS INC.-2014GMK010099

PATIENT
  Age: 58 Year
  Sex: Male

DRUGS (2)
  1. ACETYLSALICYLIC ACID [Concomitant]
     Active Substance: ASPIRIN
     Dosage: 500 MG, UNK
  2. METFORMIN [Suspect]
     Active Substance: METFORMIN HYDROCHLORIDE
     Dosage: 1000 MG, BID
     Route: 048

REACTIONS (3)
  - Septic shock [None]
  - Overdose [Fatal]
  - Lactic acidosis [Fatal]

NARRATIVE: CASE EVENT DATE: 20140522
